FAERS Safety Report 6468741-2 (Version None)
Quarter: 2009Q4

REPORT INFORMATION
  Report Type: 
  Country: None (occurrence: None)
  Receive Date: 20091203
  Receipt Date: 20091201
  Transmission Date: 20100525
  Serious: No
  Sender: FDA-Public Use
  Company Number: US-B.I. PHARMACEUTICALS,INC./RIDGEFIELD-2009-BP-13044BP

PATIENT
  Sex: Female

DRUGS (6)
  1. SPIRIVA [Suspect]
     Indication: CHRONIC OBSTRUCTIVE PULMONARY DISEASE
     Dosage: 18 MCG
     Route: 055
     Dates: start: 20050101, end: 20091001
  2. ADVAIR DISKUS 100/50 [Suspect]
     Indication: CHRONIC OBSTRUCTIVE PULMONARY DISEASE
  3. XOPENEX [Concomitant]
  4. NEXIUM [Concomitant]
     Dosage: 40 MG
  5. PREDNISONE [Concomitant]
  6. ALBUTEROL [Concomitant]
     Indication: WHEEZING

REACTIONS (3)
  - ANXIETY [None]
  - DYSPNOEA [None]
  - SWOLLEN TONGUE [None]
